FAERS Safety Report 7557175-5 (Version None)
Quarter: 2011Q2

REPORT INFORMATION
  Report Type: 
  Country: None (occurrence: None)
  Receive Date: 20110616
  Receipt Date: 20110616
  Transmission Date: 20111010
  Serious: Yes (Other)
  Sender: FDA-Public Use
  Company Number: None

PATIENT
  Age: 62 Year
  Sex: Male
  Weight: 61.6892 kg

DRUGS (1)
  1. HALOPERIDOL [Suspect]
     Indication: AGITATION
     Dosage: 5-6 MG EVERY 4 HOURS IV
     Route: 042
     Dates: start: 20091201, end: 20091204

REACTIONS (4)
  - DROOLING [None]
  - TYPE 2 DIABETES MELLITUS [None]
  - DYSKINESIA [None]
  - LOWER RESPIRATORY TRACT INFECTION FUNGAL [None]
